FAERS Safety Report 9129456 (Version 1)
Quarter: 2013Q1

REPORT INFORMATION
  Report Type: Spontaneous
  Country: US (occurrence: US)
  Receive Date: 20130228
  Receipt Date: 20130228
  Transmission Date: 20140127
  Serious: Yes (Death)
  Sender: FDA-Public Use
  Company Number: US-GLAXOSMITHKLINE-A1013911A

PATIENT
  Age: 33 Year
  Sex: Male

DRUGS (6)
  1. VOTRIENT [Suspect]
     Indication: SOFT TISSUE CANCER
     Dosage: 200MG FOUR TIMES PER DAY
     Route: 048
     Dates: end: 20130117
  2. ALBUTEROL SULFATE [Concomitant]
  3. METOPROLOL SUCCINATE [Concomitant]
  4. PERCOCET [Concomitant]
  5. DILAUDID [Concomitant]
  6. OXYCODONE [Concomitant]

REACTIONS (1)
  - Death [Fatal]
